FAERS Safety Report 9210978 (Version 3)
Quarter: 2014Q1

REPORT INFORMATION
  Report Type: Spontaneous
  Country: US (occurrence: US)
  Receive Date: 20130404
  Receipt Date: 20140304
  Transmission Date: 20141002
  Serious: Yes (Other)
  Sender: FDA-Public Use
  Company Number: US-PFIZER INC-2013103147

PATIENT
  Age: 94 Year
  Sex: Female
  Weight: 66 kg

DRUGS (3)
  1. XALATAN [Suspect]
     Indication: GLAUCOMA
     Dosage: 1 GTT, 1X/DAY
     Route: 047
  2. XALATAN [Suspect]
     Dosage: 1 GTT, 1X/DAY
  3. ALDOMET [Concomitant]
     Indication: HYPERTENSION
     Dosage: 250 MG, 2X/DAY

REACTIONS (1)
  - Age-related macular degeneration [Unknown]
